FAERS Safety Report 22040672 (Version 1)
Quarter: 2023Q1

REPORT INFORMATION
  Report Type: Spontaneous
  Country: FR (occurrence: FR)
  Receive Date: 20230227
  Receipt Date: 20230227
  Transmission Date: 20230418
  Serious: Yes (Other)
  Sender: FDA-Public Use
  Company Number: None

PATIENT
  Age: 31 Year
  Sex: Male
  Weight: 78 kg

DRUGS (1)
  1. AMOXICILLIN [Suspect]
     Active Substance: AMOXICILLIN
     Indication: Pneumonia
     Dosage: 3 GRAM DAILY; 1G 3X/D
     Route: 065
     Dates: start: 2018, end: 2018

REACTIONS (1)
  - Fixed eruption [Recovered/Resolved]

NARRATIVE: CASE EVENT DATE: 20180101
